FAERS Safety Report 8058710-3 (Version None)
Quarter: 2012Q1

REPORT INFORMATION
  Report Type: 
  Country: None (occurrence: None)
  Receive Date: 20120113
  Receipt Date: 20120110
  Transmission Date: 20120608
  Serious: Yes (Death)
  Sender: FDA-Public Use
  Company Number: 1000026971

PATIENT
  Age: 50 Year
  Sex: Male

DRUGS (3)
  1. BUPROPION HCL [Suspect]
     Dosage: 4.5 GM, ONCE
  2. DILTIAZEM HYDROCHLORIDE [Suspect]
     Dosage: 0.8 GM, ONCE
  3. OXCARBAZEPINE [Suspect]
     Dosage: 3.6 GM, ONCE

REACTIONS (27)
  - NODAL RHYTHM [None]
  - ACIDOSIS [None]
  - ALANINE AMINOTRANSFERASE INCREASED [None]
  - ALCOHOL POISONING [None]
  - HYPOTENSION [None]
  - NERVOUS SYSTEM DISORDER [None]
  - ATRIOVENTRICULAR BLOCK FIRST DEGREE [None]
  - PULMONARY OEDEMA [None]
  - HYPERKALAEMIA [None]
  - CARDIAC ARREST [None]
  - COMPARTMENT SYNDROME [None]
  - CARDIAC DISORDER [None]
  - ASPIRATION [None]
  - ASPARTATE AMINOTRANSFERASE INCREASED [None]
  - ABDOMINAL PAIN UPPER [None]
  - HYPERGLYCAEMIA [None]
  - PLEURAL EFFUSION [None]
  - COMPLETED SUICIDE [None]
  - SCROTAL DISORDER [None]
  - HYPERHIDROSIS [None]
  - TACHYPNOEA [None]
  - BRADYCARDIA [None]
  - RESPIRATORY ARREST [None]
  - ELECTROCARDIOGRAM QRS COMPLEX PROLONGED [None]
  - SKIN NECROSIS [None]
  - DIZZINESS [None]
  - HAEMODIALYSIS [None]
